FAERS Safety Report 8838638 (Version 1)
Quarter: 2012Q4

REPORT INFORMATION
  Report Type: 
  Country: US (occurrence: US)
  Receive Date: 20121012
  Receipt Date: 20121012
  Transmission Date: 20130627
  Serious: No
  Sender: FDA-Public Use
  Company Number: US-009507513-1210USA002307

PATIENT
  Sex: Male

DRUGS (4)
  1. PEGINTRON [Suspect]
     Indication: HEPATITIS C
     Dosage: UNK
     Dates: start: 20111101, end: 20120301
  2. REBETOL [Suspect]
     Indication: HEPATITIS C
     Dosage: UNK
     Dates: start: 20111101, end: 20120301
  3. VICTRELIS [Suspect]
     Indication: HEPATITIS C
     Dosage: UNK
     Dates: start: 20111101, end: 20120301
  4. VICODIN [Concomitant]
     Dosage: UNK

REACTIONS (6)
  - Abasia [Unknown]
  - Arthritis [Unknown]
  - Depressed mood [Unknown]
  - Pain [Unknown]
  - Decreased appetite [Unknown]
  - Drug ineffective [Unknown]
